FAERS Safety Report 17269574 (Version 1)
Quarter: 2020Q1

REPORT INFORMATION
  Report Type: Spontaneous
  Country: CN (occurrence: CN)
  Receive Date: 20200114
  Receipt Date: 20200114
  Transmission Date: 20200409
  Serious: Yes (Other)
  Sender: FDA-Public Use
  Company Number: CN-PFIZER INC-2020005852

PATIENT
  Age: 62 Year
  Sex: Female
  Weight: 48.6 kg

DRUGS (1)
  1. SOLU-MEDROL [Suspect]
     Active Substance: METHYLPREDNISOLONE SODIUM SUCCINATE
     Dosage: 40 MG, 1X/DAY

REACTIONS (7)
  - Body temperature fluctuation [Unknown]
  - Decreased appetite [Unknown]
  - Pyrexia [Unknown]
  - Hyperventilation [Unknown]
  - Rales [Unknown]
  - Pemphigoid [Unknown]
  - Oedema peripheral [Unknown]

NARRATIVE: CASE EVENT DATE: 20191228
